FAERS Safety Report 7679683-9 (Version None)
Quarter: 2011Q3

REPORT INFORMATION
  Report Type: 
  Country: None (occurrence: None)
  Receive Date: 20110812
  Receipt Date: 20110731
  Transmission Date: 20111222
  Serious: Yes (Hospitalization)
  Sender: FDA-Public Use
  Company Number: CA-ELI_LILLY_AND_COMPANY-CA201108000796

PATIENT
  Age: 54 Year
  Sex: Female

DRUGS (8)
  1. METHOTREXATE [Concomitant]
  2. SCOPOLAMINE [Concomitant]
  3. FORTEO [Suspect]
     Indication: OSTEOPOROSIS
     Dosage: 20 UG, QD
     Route: 058
     Dates: start: 20110210, end: 20110730
  4. PREDNISONE [Concomitant]
  5. MORPHINE [Concomitant]
  6. CELEXA [Concomitant]
  7. TRAZODONE HCL [Concomitant]
  8. NITROFURANTOIN [Concomitant]

REACTIONS (1)
  - THORACIC VERTEBRAL FRACTURE [None]
